FAERS Safety Report 9228711 (Version 1)
Quarter: 2013Q2

REPORT INFORMATION
  Report Type: Spontaneous
  Country: NL (occurrence: NL)
  Receive Date: 20130412
  Receipt Date: 20130422
  Transmission Date: 20140414
  Serious: Yes (Hospitalization)
  Sender: FDA-Public Use
  Company Number: NL-PFIZER INC-2013110810

PATIENT
  Age: 23 Year
  Sex: Female

DRUGS (1)
  1. ETHINYLESTRADIOL/LEVONORGESTREL [Suspect]
     Dosage: 1 DF, CYCLIC
     Dates: start: 20110926, end: 20130301

REACTIONS (1)
  - Hepatic function abnormal [Recovered/Resolved]
